FAERS Safety Report 8094977-3 (Version None)
Quarter: 2012Q1

REPORT INFORMATION
  Report Type: 
  Country: None (occurrence: None)
  Receive Date: 20120131
  Receipt Date: 20111111
  Transmission Date: 20120608
  Serious: No
  Sender: FDA-Public Use
  Company Number: US-ABBOTT-11P-163-0874390-00

PATIENT
  Sex: Female
  Weight: 54.48 kg

DRUGS (9)
  1. CREON [Suspect]
     Dosage: 2 TABLETS OF 20,000 UNITS WITH EACH MEAL + SNACK
     Route: 048
     Dates: start: 20110101, end: 20110101
  2. CREON [Suspect]
     Dosage: WITH EACH MEAL + SNACK
     Route: 048
     Dates: start: 20110101
  3. INSULIN [Concomitant]
     Indication: DIABETES MELLITUS
  4. TOPROL-XL [Concomitant]
     Indication: HYPERTENSION
     Route: 048
  5. NIFEDICAL [Concomitant]
     Indication: PRODUCT USED FOR UNKNOWN INDICATION
     Route: 048
  6. CALCIUM [Concomitant]
     Indication: PRODUCT USED FOR UNKNOWN INDICATION
  7. XANAX [Concomitant]
     Indication: PRODUCT USED FOR UNKNOWN INDICATION
     Dosage: AT HOUR OF SLEEP
  8. CREON [Suspect]
     Indication: PANCREATECTOMY
     Dosage: 1 TABLET OF 20,000 UNITS BEFORE EACH MEAL + SNACK
     Route: 048
     Dates: start: 20070401, end: 20110101
  9. VITAMIN E [Concomitant]
     Indication: PRODUCT USED FOR UNKNOWN INDICATION

REACTIONS (6)
  - ABDOMINAL PAIN UPPER [None]
  - ABDOMINAL DISTENSION [None]
  - BLOOD GLUCOSE ABNORMAL [None]
  - FLATULENCE [None]
  - DIZZINESS [None]
  - GAIT DISTURBANCE [None]
